FAERS Safety Report 6853227-3 (Version None)
Quarter: 2010Q3

REPORT INFORMATION
  Report Type: 
  Country: None (occurrence: None)
  Receive Date: 20100717
  Receipt Date: 20071204
  Transmission Date: 20110219
  Serious: Yes (Other)
  Sender: FDA-Public Use
  Company Number: US-PFIZER INC-2007103583

PATIENT
  Sex: Female
  Weight: 128.6 kg

DRUGS (5)
  1. CHANTIX [Suspect]
     Indication: SMOKING CESSATION THERAPY
     Route: 048
     Dates: start: 20071001, end: 20071130
  2. PRILOSEC [Concomitant]
  3. COZAAR [Concomitant]
  4. EFFEXOR XR [Concomitant]
  5. FLONASE [Concomitant]

REACTIONS (2)
  - PRURITUS [None]
  - URTICARIA [None]
